FAERS Safety Report 6518646-3 (Version None)
Quarter: 2009Q4

REPORT INFORMATION
  Report Type: 
  Country: None (occurrence: None)
  Receive Date: 20091228
  Receipt Date: 20091218
  Transmission Date: 20100525
  Serious: Yes (Other)
  Sender: FDA-Public Use
  Company Number: CH-BAYER-200936986GPV

PATIENT
  Age: 37 Year
  Sex: Female
  Weight: 53 kg

DRUGS (3)
  1. MIRENA [Suspect]
     Indication: DRUG USE FOR UNKNOWN INDICATION
     Route: 015
     Dates: start: 20090818
  2. YASMIN [Suspect]
     Indication: DRUG USE FOR UNKNOWN INDICATION
     Route: 048
     Dates: start: 20090531
  3. IRON [Concomitant]
     Indication: PROPHYLAXIS
     Dosage: AS USED: 1-2 DF
     Route: 048

REACTIONS (3)
  - ADENOMYOSIS [None]
  - ALOPECIA [None]
  - VAGINAL HAEMORRHAGE [None]
